FAERS Safety Report 6824163-3 (Version None)
Quarter: 2010Q3

REPORT INFORMATION
  Report Type: 
  Country: None (occurrence: None)
  Receive Date: 20100708
  Receipt Date: 20100628
  Transmission Date: 20110219
  Serious: Yes (Life-Threatening, Hospitalization)
  Sender: FDA-Public Use
  Company Number: US-ABBOTT-10P-163-0654020-00

PATIENT
  Sex: Female

DRUGS (5)
  1. VALPROIC ACID [Suspect]
     Indication: PRODUCT USED FOR UNKNOWN INDICATION
     Dates: start: 20091228
  2. ATAZANAVIR [Suspect]
     Indication: HIV INFECTION
     Route: 048
     Dates: start: 20091021
  3. LAMIVUDINE + ZIDOVUDINE [Suspect]
     Indication: HIV INFECTION
     Route: 048
     Dates: start: 20091021
  4. AMITRIPTYLINE [Suspect]
     Indication: DEPRESSION
     Dosage: INGESTED 20 CAPSULES
     Dates: start: 20090715
  5. FLUOXETINE [Suspect]
     Indication: DEPRESSION
     Dates: start: 20091228

REACTIONS (5)
  - AFFECTIVE DISORDER [None]
  - HEPATIC ENZYME INCREASED [None]
  - OVERDOSE [None]
  - RESPIRATORY FAILURE [None]
  - SUICIDE ATTEMPT [None]
